FAERS Safety Report 6056203-6 (Version None)
Quarter: 2009Q1

REPORT INFORMATION
  Report Type: 
  Country: None (occurrence: None)
  Receive Date: 20090129
  Receipt Date: 20090120
  Transmission Date: 20090719
  Serious: Yes (Other)
  Sender: FDA-Public Use
  Company Number: BR-JNJFOC-20090105142

PATIENT
  Age: 14 Year
  Sex: Female
  Weight: 76 kg

DRUGS (3)
  1. HALDOL [Suspect]
     Indication: NERVOUSNESS
     Route: 065
  2. HALDOL [Suspect]
     Indication: AGITATION
     Dosage: 1 OR 2 TABLETS OF 1 MG AT NIGHT
     Route: 065
  3. HALDOL [Suspect]
     Indication: DEPRESSION
     Dosage: 100 DROPS A DAY FOR ONE MONTH
     Route: 065

REACTIONS (4)
  - CONFUSIONAL STATE [None]
  - FEELING ABNORMAL [None]
  - GAIT DISTURBANCE [None]
  - SOMNOLENCE [None]
